FAERS Safety Report 16691626 (Version 1)
Quarter: 2019Q3

REPORT INFORMATION
  Report Type: Spontaneous
  Country: US (occurrence: US)
  Receive Date: 20190625
  Receipt Date: 20190625
  Transmission Date: 20191004
  Serious: No
  Sender: FDA-Public Use
  Company Number: None

PATIENT
  Age: 57 Year
  Sex: Female
  Weight: 47.63 kg

DRUGS (3)
  1. METOPROLOL. [Concomitant]
     Active Substance: METOPROLOL
  2. AJOVY [Suspect]
     Active Substance: FREMANEZUMAB-VFRM
  3. AIMOVIG [Suspect]
     Active Substance: ERENUMAB-AOOE
     Indication: MIGRAINE
     Dosage: ?          OTHER FREQUENCY:EVERY 28 DAY INJ;?
     Route: 011
     Dates: start: 2018, end: 20190510

REACTIONS (1)
  - Urticaria [None]

NARRATIVE: CASE EVENT DATE: 20180615
